FAERS Safety Report 9947727 (Version 1)
Quarter: 2014Q1

REPORT INFORMATION
  Report Type: Spontaneous
  Country: US (occurrence: None)
  Receive Date: 20140122
  Receipt Date: 20140122
  Transmission Date: 20141002
  Serious: No
  Sender: FDA-Public Use
  Company Number: AP356-00136-SPO-US

PATIENT
  Age: 59 Year
  Sex: Female
  Weight: 77 kg

DRUGS (1)
  1. BELVIQ [Suspect]
     Indication: WEIGHT CONTROL
     Route: 048
     Dates: start: 201308, end: 201308

REACTIONS (2)
  - Fatigue [None]
  - Somnolence [None]
